FAERS Safety Report 25095300 (Version 1)
Quarter: 2025Q1

REPORT INFORMATION
  Report Type: Report from Study
  Country: US (occurrence: US)
  Receive Date: 20250319
  Receipt Date: 20250319
  Transmission Date: 20250409
  Serious: Yes (Hospitalization, Other)
  Sender: CALLIDITAS THERAPEUTICS AB
  Company Number: US-Calliditas-2025CAL00705

PATIENT
  Age: 71 Year
  Sex: Male

DRUGS (1)
  1. TARPEYO [Suspect]
     Active Substance: BUDESONIDE
     Indication: IgA nephropathy
     Route: 048
     Dates: start: 20250214

REACTIONS (6)
  - Urinary tract infection [Unknown]
  - Sepsis [Unknown]
  - Staphylococcal infection [Unknown]
  - Dehydration [Unknown]
  - Constipation [Unknown]
  - Anuria [Unknown]
